FAERS Safety Report 18343950 (Version 1)
Quarter: 2020Q4

REPORT INFORMATION
  Report Type: Spontaneous
  Country: US (occurrence: US)
  Receive Date: 20201001
  Receipt Date: 20201001
  Transmission Date: 20210114
  Serious: No
  Sender: FDA-Public Use
  Company Number: None

PATIENT
  Age: 52 Year
  Sex: Male

DRUGS (1)
  1. TREMFYA [Suspect]
     Active Substance: GUSELKUMAB
     Indication: PSORIASIS
     Dosage: ?          OTHER FREQUENCY:EVERY 8 WEEKS;OTHER ROUTE:UNDER THE SKIN?
     Route: 058
     Dates: start: 20200904

REACTIONS (3)
  - Adverse event [None]
  - Therapy interrupted [None]
  - Device malfunction [None]

NARRATIVE: CASE EVENT DATE: 20200920
